FAERS Safety Report 8080675-9 (Version None)
Quarter: 2012Q1

REPORT INFORMATION
  Report Type: 
  Country: None (occurrence: None)
  Receive Date: 20120130
  Receipt Date: 20120123
  Transmission Date: 20120608
  Serious: Yes (Hospitalization, Disabling, Other)
  Sender: FDA-Public Use
  Company Number: PHEH2009US12310

PATIENT
  Sex: Male

DRUGS (21)
  1. COMBIVIR [Concomitant]
  2. CIPRO [Concomitant]
     Dosage: 500 MG, UNK
  3. LAMIVUDINE [Concomitant]
  4. PERIDEX [Concomitant]
     Dosage: 0.018 G, BID
  5. KEFLEX [Concomitant]
     Dosage: 250 MG, QID
  6. TRUVADA [Concomitant]
     Route: 048
  7. DARUNAVIR [Concomitant]
     Dosage: 800 MG, UNK
     Route: 048
  8. NEURONTIN [Concomitant]
  9. LISINOPRIL [Concomitant]
  10. XALATAN [Concomitant]
  11. NORVIR [Concomitant]
     Dosage: 100 MG, UNK
     Route: 048
  12. PERCOCET [Concomitant]
  13. ASCORBIC ACID [Concomitant]
  14. AMITRIPTYLINE HCL [Concomitant]
     Dosage: 25 MG, UNK
     Route: 048
  15. ZOMETA [Suspect]
     Indication: MULTIPLE MYELOMA
     Dates: start: 20030101, end: 20060101
  16. NULYTELY [Concomitant]
  17. ABACAVIR [Concomitant]
  18. VIRAMUNE [Concomitant]
  19. MS CONTIN [Concomitant]
  20. CLINDAMYCIN [Concomitant]
  21. ABACAVIR SULFATE/LAMIVUDINE [Concomitant]

REACTIONS (59)
  - OSTEONECROSIS OF JAW [None]
  - INJURY [None]
  - SENSITIVITY OF TEETH [None]
  - LYMPHADENOPATHY [None]
  - INTERVERTEBRAL DISC DEGENERATION [None]
  - ANHEDONIA [None]
  - ABNORMAL BEHAVIOUR [None]
  - SUICIDAL IDEATION [None]
  - GLAUCOMA [None]
  - DEAFNESS [None]
  - PANCREATITIS ACUTE [None]
  - NEPHROLITHIASIS [None]
  - PAIN [None]
  - DEFORMITY [None]
  - DENTAL CARIES [None]
  - TENDERNESS [None]
  - FATIGUE [None]
  - DELUSION [None]
  - ALCOHOL ABUSE [None]
  - LACERATION [None]
  - MAJOR DEPRESSION [None]
  - AGITATION [None]
  - PROTEINURIA [None]
  - WEIGHT DECREASED [None]
  - SUBCUTANEOUS ABSCESS [None]
  - INFECTION [None]
  - PHYSICAL DISABILITY [None]
  - GINGIVAL SWELLING [None]
  - HEADACHE [None]
  - PAIN IN JAW [None]
  - OSTEOMYELITIS [None]
  - HYPOAESTHESIA ORAL [None]
  - RENAL CYST [None]
  - DEPRESSION [None]
  - DISSOCIATIVE IDENTITY DISORDER [None]
  - APATHY [None]
  - HYPERSOMNIA [None]
  - DISTURBANCE IN ATTENTION [None]
  - THROMBOCYTOPENIA [None]
  - INFLAMMATION [None]
  - CONSTIPATION [None]
  - ANXIETY [None]
  - TOOTH ABSCESS [None]
  - OVERDOSE [None]
  - ABSCESS NECK [None]
  - SUSPICIOUSNESS [None]
  - DRY GANGRENE [None]
  - ABDOMINAL PAIN [None]
  - FEAR [None]
  - XEROSIS [None]
  - FOOT DEFORMITY [None]
  - DIVERTICULUM [None]
  - EMOTIONAL DISTRESS [None]
  - JAW CYST [None]
  - JAW FRACTURE [None]
  - TOOTHACHE [None]
  - DISCOMFORT [None]
  - POST-TRAUMATIC STRESS DISORDER [None]
  - FISTULA DISCHARGE [None]
